FAERS Safety Report 11142359 (Version 1)
Quarter: 2015Q2

REPORT INFORMATION
  Report Type: Report from Study
  Country: JP (occurrence: JP)
  Receive Date: 20150527
  Receipt Date: 20150527
  Transmission Date: 20150821
  Serious: Yes (Death, Other)
  Sender: FDA-Public Use
  Company Number: JP-BAXTER-2015BAX028134

PATIENT
  Age: 70 Year
  Sex: Male

DRUGS (1)
  1. EXTRANEAL [Suspect]
     Active Substance: CALCIUM CHLORIDE\ICODEXTRIN\MAGNESIUM CHLORIDE\SODIUM CHLORIDE\SODIUM LACTATE
     Indication: GLOMERULONEPHRITIS CHRONIC
     Route: 033

REACTIONS (2)
  - Sclerosing encapsulating peritonitis [Unknown]
  - Neoplasm malignant [Fatal]
